FAERS Safety Report 12544469 (Version 1)
Quarter: 2016Q3

REPORT INFORMATION
  Report Type: Spontaneous
  Country: US (occurrence: None)
  Receive Date: 20160708
  Receipt Date: 20160708
  Transmission Date: 20161109
  Serious: No
  Sender: FDA-Public Use
  Company Number: None

PATIENT
  Age: 47 Year
  Sex: Male

DRUGS (1)
  1. IMATINIB [Suspect]
     Active Substance: IMATINIB
     Indication: SOFT TISSUE NEOPLASM
     Route: 048
     Dates: start: 20160527

REACTIONS (6)
  - Joint swelling [None]
  - Peripheral swelling [None]
  - Pain in extremity [None]
  - Hypoaesthesia [None]
  - Pain [None]
  - Renal pain [None]

NARRATIVE: CASE EVENT DATE: 20160527
